FAERS Safety Report 6567718-6 (Version None)
Quarter: 2010Q1

REPORT INFORMATION
  Report Type: 
  Country: None (occurrence: None)
  Receive Date: 20100203
  Receipt Date: 20100121
  Transmission Date: 20100710
  Serious: Yes (Other)
  Sender: FDA-Public Use
  Company Number: BR-PFIZER INC-2010008586

PATIENT
  Age: 64 Year
  Sex: Female
  Weight: 64 kg

DRUGS (4)
  1. FRONTAL [Suspect]
     Indication: INSOMNIA
     Dosage: 0.25 MG, UNK
     Route: 048
     Dates: end: 20090801
  2. FRONTAL [Suspect]
     Indication: AGITATION
  3. LOSARTAN [Suspect]
     Indication: HYPERTENSION
  4. LIMBITROL [Suspect]
     Indication: DEPRESSION

REACTIONS (7)
  - ALLERGY TO CHEMICALS [None]
  - DEPRESSION [None]
  - HYPERTENSION [None]
  - MALAISE [None]
  - URETHRAL PAIN [None]
  - VAGINAL PROLAPSE [None]
  - VULVOVAGINAL DISCOMFORT [None]
